FAERS Safety Report 8033506-7 (Version None)
Quarter: 2012Q1

REPORT INFORMATION
  Report Type: 
  Country: None (occurrence: None)
  Receive Date: 20120110
  Receipt Date: 20120103
  Transmission Date: 20120608
  Serious: Yes (Hospitalization)
  Sender: FDA-Public Use
  Company Number: US-TEVA-310141USA

PATIENT
  Age: 11 Year
  Sex: Male

DRUGS (1)
  1. MAGNESIUM SULFATE [Suspect]
     Indication: CONSTIPATION

REACTIONS (2)
  - COMA [None]
  - HYPERMAGNESAEMIA [None]
